FAERS Safety Report 26172134 (Version 1)
Quarter: 2025Q4

REPORT INFORMATION
  Report Type: Spontaneous
  Country: US (occurrence: US)
  Receive Date: 20251218
  Receipt Date: 20251218
  Transmission Date: 20260118
  Serious: Yes (Hospitalization, Other)
  Sender: JUBILANT
  Company Number: None

PATIENT
  Age: 65 Year
  Sex: Female

DRUGS (1)
  1. PAROXETINE [Suspect]
     Active Substance: PAROXETINE
     Indication: Product used for unknown indication
     Dosage: UNK,UNK

REACTIONS (7)
  - Urine odour abnormal [Recovered/Resolved]
  - Pollakiuria [Recovered/Resolved]
  - Chest pain [Recovered/Resolved]
  - Back pain [Recovered/Resolved]
  - Vomiting [Recovered/Resolved]
  - Pyelonephritis [Recovered/Resolved]
  - Drug withdrawal syndrome [Recovered/Resolved]
